FAERS Safety Report 17904314 (Version 1)
Quarter: 2020Q2

REPORT INFORMATION
  Report Type: Spontaneous
  Country: DE (occurrence: DE)
  Receive Date: 20200617
  Receipt Date: 20200617
  Transmission Date: 20200714
  Serious: Yes (Hospitalization)
  Sender: FDA-Public Use
  Company Number: DE-SA-2020SA154104

PATIENT

DRUGS (8)
  1. BISOPROLOL [Concomitant]
     Active Substance: BISOPROLOL
     Dosage: 12.5 MG, BID (1-0-1-0)
     Route: 048
  2. ACETYLSALICYLIC ACID [Concomitant]
     Active Substance: ASPIRIN
     Dosage: 100 MG, NK
     Route: 048
  3. PREGABALIN. [Concomitant]
     Active Substance: PREGABALIN
     Dosage: 100 MG, QD (0-0-1-0)
     Route: 048
  4. BEVACIZUMAB. [Suspect]
     Active Substance: BEVACIZUMAB
     Dosage: UNK MG (ACCORDING TO SCHEME/PLAN)
  5. FLUOROURACIL. [Suspect]
     Active Substance: FLUOROURACIL
     Dosage: UNK MG (ACCORDING TO SCHEME/PLAN)
  6. OXALIPLATIN. [Suspect]
     Active Substance: OXALIPLATIN
     Dosage: UNK MG (ACCORDING TO SCHEME/PLAN)
  7. OXYCODONE [Suspect]
     Active Substance: OXYCODONE
     Dosage: 10 MG, BID (1-0-1-0)
     Route: 048
  8. FOLINIC ACID [Suspect]
     Active Substance: LEUCOVORIN
     Dosage: UNK MG (ACCORDING TO SCHEME/PLAN)

REACTIONS (8)
  - Pallor [Unknown]
  - Oedema peripheral [Unknown]
  - Fall [Unknown]
  - Asthenia [Unknown]
  - Dizziness [Unknown]
  - General physical health deterioration [Unknown]
  - Condition aggravated [Unknown]
  - Fatigue [Unknown]
